FAERS Safety Report 12826921 (Version 1)
Quarter: 2016Q4

REPORT INFORMATION
  Report Type: Spontaneous
  Country: FR (occurrence: FR)
  Receive Date: 20161006
  Receipt Date: 20161006
  Transmission Date: 20170207
  Serious: Yes (Other)
  Sender: FDA-Public Use
  Company Number: FR-009507513-1609FRA014119

PATIENT

DRUGS (1)
  1. ESMERON [Suspect]
     Active Substance: ROCURONIUM BROMIDE
     Indication: GASTROINTESTINAL SURGERY
     Dosage: UNK
     Dates: start: 2014

REACTIONS (2)
  - Delayed recovery from anaesthesia [Unknown]
  - Airway complication of anaesthesia [Unknown]

NARRATIVE: CASE EVENT DATE: 2014
